FAERS Safety Report 20664556 (Version 1)
Quarter: 2022Q2

REPORT INFORMATION
  Report Type: Spontaneous
  Country: CN (occurrence: CN)
  Receive Date: 20220401
  Receipt Date: 20220401
  Transmission Date: 20220721
  Serious: Yes (Other)
  Sender: FDA-Public Use
  Company Number: CN-PFIZER INC-202200440982

PATIENT
  Age: 50 Year
  Sex: Female
  Weight: 65.8 kg

DRUGS (1)
  1. MEDROL [Suspect]
     Active Substance: METHYLPREDNISOLONE
     Indication: Thyroiditis subacute
     Dosage: 24 UG, 1X/DAY
     Route: 048
     Dates: start: 20220130, end: 20220207

REACTIONS (1)
  - Steroid diabetes [Recovering/Resolving]

NARRATIVE: CASE EVENT DATE: 20220131
